FAERS Safety Report 4647397-5 (Version None)
Quarter: 2005Q2

REPORT INFORMATION
  Report Type: 
  Country: None (occurrence: None)
  Receive Date: 20050427
  Receipt Date: 20050427
  Transmission Date: 20051028
  Serious: Yes (Hospitalization)
  Sender: FDA-Public Use
  Company Number: None

PATIENT
  Sex: Female
  Weight: 66 kg

DRUGS (5)
  1. LAMICTAL [Suspect]
     Indication: SCHIZOPHRENIA
     Dosage: 100 MG QHS ORAL
     Route: 048
     Dates: start: 20050301, end: 20050416
  2. COGENTIN [Concomitant]
  3. DEPAKOTE ER [Concomitant]
  4. GEODON [Concomitant]
  5. SYNTHROID [Concomitant]

REACTIONS (5)
  - CHILLS [None]
  - GENERALISED ERYTHEMA [None]
  - ORAL SOFT TISSUE DISORDER [None]
  - PYREXIA [None]
  - RASH MACULO-PAPULAR [None]
